FAERS Safety Report 12157428 (Version 6)
Quarter: 2017Q2

REPORT INFORMATION
  Report Type: Spontaneous
  Country: FR (occurrence: FR)
  Receive Date: 20160308
  Receipt Date: 20170418
  Transmission Date: 20170829
  Serious: Yes (Other)
  Sender: FDA-Public Use
  Company Number: FR-LEO PHARMA-240311

PATIENT
  Age: 48 Year
  Sex: Female
  Weight: 56 kg

DRUGS (2)
  1. PICATO [Suspect]
     Active Substance: INGENOL MEBUTATE
     Indication: ACTINIC KERATOSIS
     Route: 061
     Dates: start: 20160216, end: 20160217
  2. LEVOTHYROXIN [Concomitant]
     Active Substance: LEVOTHYROXINE
     Indication: THYROIDECTOMY
     Dates: start: 2004

REACTIONS (11)
  - Drug administered at inappropriate site [Unknown]
  - Application site oedema [Recovered/Resolved]
  - Application site vesicles [Recovered/Resolved]
  - Paraesthesia [Recovered/Resolved with Sequelae]
  - Application site erythema [Recovered/Resolved with Sequelae]
  - Ocular discomfort [Recovered/Resolved]
  - Application site exfoliation [Recovered/Resolved]
  - Periorbital oedema [Recovered/Resolved]
  - Application site scab [Recovered/Resolved]
  - Application site pain [Recovered/Resolved with Sequelae]
  - Incorrect drug administration duration [Unknown]

NARRATIVE: CASE EVENT DATE: 20160216
